FAERS Safety Report 6983851-9 (Version None)
Quarter: 2010Q3

REPORT INFORMATION
  Report Type: 
  Country: None (occurrence: None)
  Receive Date: 20100914
  Receipt Date: 20090305
  Transmission Date: 20110219
  Serious: No
  Sender: FDA-Public Use
  Company Number: US-WYE-H08491109

PATIENT
  Sex: Female
  Weight: 72.64 kg

DRUGS (2)
  1. PHOSPHOLINE IODIDE [Suspect]
     Indication: GLAUCOMA
     Dosage: UNSPECIFIED
     Dates: start: 20090228
  2. ISOSORBIDE DINITRATE [Concomitant]

REACTIONS (1)
  - EYE PAIN [None]
